FAERS Safety Report 8047897 (Version 5)
Quarter: 2013Q2

REPORT INFORMATION
  Report Type: Spontaneous
  Country: US (occurrence: US)
  Receive Date: 20110721
  Receipt Date: 20130524
  Transmission Date: 20140414
  Serious: Yes (Life-Threatening, Hospitalization, Congenital Anomaly, Other)
  Sender: FDA-Public Use
  Company Number: US-PFIZER INC-2011158463

PATIENT
  Sex: Male
  Weight: 2.5 kg

DRUGS (6)
  1. EFFEXOR [Suspect]
     Dosage: UNK
     Route: 064
  2. VENLAFAXINE HCL [Suspect]
     Dosage: UNK
     Route: 064
  3. AUGMENTIN [Concomitant]
     Dosage: UNK
     Route: 064
     Dates: start: 20100322
  4. TYLENOL [Concomitant]
     Indication: SINUS HEADACHE
     Dosage: UNK
     Route: 064
     Dates: start: 20100322
  5. AMOXICILLIN SODIUM/CLAVULANATE POTASSIUM [Concomitant]
     Dosage: UNK
     Route: 064
     Dates: start: 20100322
  6. PENICILLIN G [Concomitant]
     Indication: BACTERIAL TEST POSITIVE
     Dosage: UNK
     Route: 064

REACTIONS (42)
  - Maternal exposure timing unspecified [Unknown]
  - Double outlet right ventricle [Unknown]
  - Pulmonary artery stenosis congenital [Unknown]
  - Patent ductus arteriosus [Recovered/Resolved]
  - Fallot^s tetralogy [Unknown]
  - Cardiac failure congestive [Unknown]
  - Transposition of the great vessels [Unknown]
  - Apnoea neonatal [Unknown]
  - Neonatal respiratory distress syndrome [Recovered/Resolved]
  - Sepsis neonatal [Recovered/Resolved]
  - Jaundice neonatal [Recovered/Resolved]
  - Feeding disorder neonatal [Unknown]
  - Metabolic acidosis [Recovered/Resolved]
  - Genital rash [Recovered/Resolved]
  - Anaemia neonatal [Unknown]
  - Premature baby [Unknown]
  - Ventricular septal defect [Recovering/Resolving]
  - Atrial septal defect [Recovered/Resolved]
  - Congenital coronary artery malformation [Unknown]
  - Persistent left superior vena cava [Unknown]
  - Plagiocephaly [Unknown]
  - Cardiomegaly [Not Recovered/Not Resolved]
  - Congenital pulmonary hypertension [Recovering/Resolving]
  - Pulmonary oedema [Unknown]
  - Tricuspid valve incompetence [Unknown]
  - Aortic valve stenosis [Recovered/Resolved]
  - Gross motor delay [Unknown]
  - Chylothorax [Unknown]
  - Phimosis [Unknown]
  - Failure to thrive [Unknown]
  - Torticollis [Unknown]
  - Supraventricular tachycardia [Unknown]
  - Developmental delay [Unknown]
  - Hypotonia [Unknown]
  - Speech disorder developmental [Unknown]
  - Dysphagia [Unknown]
  - Fine motor delay [Unknown]
  - Atelectasis [Unknown]
  - Hepatomegaly [Unknown]
  - Abnormal loss of weight [Unknown]
  - Muscular weakness [Unknown]
  - Muscular weakness [Unknown]
